FAERS Safety Report 5376209-X (Version None)
Quarter: 2007Q2

REPORT INFORMATION
  Report Type: 
  Country: None (occurrence: None)
  Receive Date: 20070628
  Receipt Date: 20070615
  Transmission Date: 20071010
  Serious: Yes (Death)
  Sender: FDA-Public Use
  Company Number: 2007JP002836

PATIENT
  Age: 50 Year
  Sex: Male

DRUGS (3)
  1. PROGRAF [Suspect]
     Indication: INTERSTITIAL LUNG DISEASE
  2. STEROID INJECTION [Concomitant]
  3. CYCLOPHOSPHAMIDE [Concomitant]

REACTIONS (2)
  - CONDITION AGGRAVATED [None]
  - INTERSTITIAL LUNG DISEASE [None]
